FAERS Safety Report 5338744-X (Version None)
Quarter: 2007Q2

REPORT INFORMATION
  Report Type: 
  Country: None (occurrence: None)
  Receive Date: 20070530
  Receipt Date: 20070521
  Transmission Date: 20071010
  Serious: Yes (Other)
  Sender: FDA-Public Use
  Company Number: BR-ASTRAZENECA-2007UW11235

PATIENT
  Age: 25 Year
  Sex: Female
  Weight: 72 kg

DRUGS (2)
  1. ZOLADEX [Suspect]
     Indication: ENDOMETRIOSIS
     Route: 058
     Dates: start: 20070320
  2. ZOLADEX [Suspect]
     Route: 058
     Dates: start: 20070521

REACTIONS (6)
  - ASTHENIA [None]
  - BREAST ENLARGEMENT [None]
  - HEADACHE [None]
  - NAUSEA [None]
  - PELVIC MASS [None]
  - WEIGHT INCREASED [None]
